FAERS Safety Report 6899632-0 (Version None)
Quarter: 2010Q3

REPORT INFORMATION
  Report Type: 
  Country: None (occurrence: None)
  Receive Date: 20100803
  Receipt Date: 20100720
  Transmission Date: 20110219
  Serious: Yes (Disabling, Other)
  Sender: FDA-Public Use
  Company Number: IT-RANBAXY-2010RR-36448

PATIENT
  Age: 59 Year
  Sex: Male

DRUGS (3)
  1. ATORVASTATIN [Suspect]
     Dosage: 40 MG, UNK
  2. CLARITHROMYCIN [Suspect]
     Indication: LUNG INFECTION
     Dosage: 500 MG, UNK
  3. PRAVASTATIN [Concomitant]

REACTIONS (3)
  - DRUG INTERACTION [None]
  - MONONEUROPATHY [None]
  - RHABDOMYOLYSIS [None]
